FAERS Safety Report 9176904 (Version 1)
Quarter: 2013Q1

REPORT INFORMATION
  Report Type: Spontaneous
  Country: US (occurrence: None)
  Receive Date: 20130320
  Receipt Date: 20130320
  Transmission Date: 20140127
  Serious: Yes (Other)
  Sender: FDA-Public Use
  Company Number: None

PATIENT
  Age: 73 Year
  Sex: 0

DRUGS (1)
  1. STIVARGA [Suspect]
     Route: 048
     Dates: start: 20121112, end: 20130304

REACTIONS (4)
  - Rash [None]
  - Mouth ulceration [None]
  - Pyrexia [None]
  - Fatigue [None]
